FAERS Safety Report 10530770 (Version 2)
Quarter: 2014Q4

REPORT INFORMATION
  Report Type: Spontaneous
  Country: GB (occurrence: GB)
  Receive Date: 20141021
  Receipt Date: 20141021
  Transmission Date: 20150528
  Serious: Yes (Other)
  Sender: FDA-Public Use
  Company Number: GB-GLAXOSMITHKLINE-B0918238A

PATIENT
  Age: 69 Year
  Sex: Male

DRUGS (5)
  1. SENSODYNE DAILY CARE [Suspect]
     Active Substance: POTASSIUM NITRATE\SODIUM FLUORIDE
     Indication: PRODUCT USED FOR UNKNOWN INDICATION
     Route: 065
  2. GAVISCON [Concomitant]
     Active Substance: ALUMINUM HYDROXIDE\MAGNESIUM CARBONATE
  3. SENSODYNE EXTRA WHITENING [Suspect]
     Active Substance: POTASSIUM NITRATE\SODIUM FLUORIDE
     Indication: DENTAL CARE
     Route: 004
     Dates: start: 20130821, end: 20130827
  4. NEXIUM [Concomitant]
     Active Substance: ESOMEPRAZOLE MAGNESIUM
  5. CODYDRAMOL [Concomitant]
     Dosage: UNK, PRN
     Route: 048

REACTIONS (10)
  - Ulcer [Not Recovered/Not Resolved]
  - Oral mucosal exfoliation [Recovered/Resolved]
  - Oral pain [Not Recovered/Not Resolved]
  - Burning mouth syndrome [Unknown]
  - Lip pain [Recovering/Resolving]
  - Eating disorder [Unknown]
  - Gingival pain [Recovering/Resolving]
  - Product quality issue [Unknown]
  - Oral discomfort [Unknown]
  - Off label use [Unknown]

NARRATIVE: CASE EVENT DATE: 20130825
